FAERS Safety Report 6606688-9 (Version None)
Quarter: 2010Q1

REPORT INFORMATION
  Report Type: 
  Country: None (occurrence: None)
  Receive Date: 20100226
  Receipt Date: 20090202
  Transmission Date: 20100710
  Serious: No
  Sender: FDA-Public Use
  Company Number: US-ALLERGAN-0809317US

PATIENT
  Age: 37 Year
  Sex: Female

DRUGS (1)
  1. BOTOX COSMETIC [Suspect]
     Indication: SKIN WRINKLING
     Dosage: UNK, SINGLE
     Route: 065
     Dates: start: 20080703, end: 20080703

REACTIONS (2)
  - EYELID PTOSIS [None]
  - PUPILLARY LIGHT REFLEX TESTS ABNORMAL [None]
